FAERS Safety Report 11325297 (Version 2)
Quarter: 2015Q3

REPORT INFORMATION
  Report Type: Spontaneous
  Country: DK (occurrence: CH)
  Receive Date: 20150730
  Receipt Date: 20150922
  Transmission Date: 20151125
  Serious: Yes (Hospitalization)
  Sender: FDA-Public Use
  Company Number: CH-FRI-1000078635

PATIENT
  Age: 37 Year
  Sex: Female

DRUGS (4)
  1. ESCITALOPRAM [Suspect]
     Active Substance: ESCITALOPRAM OXALATE
     Indication: POSTPARTUM DEPRESSION
     Dosage: 20 MG
     Route: 048
     Dates: start: 201501, end: 20150626
  2. RISPERDAL [Concomitant]
     Active Substance: RISPERIDONE
     Indication: POSTPARTUM DEPRESSION
     Dosage: 2 MG
     Route: 048
  3. IRFEN [Suspect]
     Active Substance: IBUPROFEN
     Indication: HEADACHE
     Dosage: AS NEEDED: TREATMENT IN RESERVE SINCE SEVERAL WEEKS, TAKEN SOMETIMES UP TO 4X/DAY
     Route: 048
     Dates: end: 20150625
  4. XANAX [Concomitant]
     Active Substance: ALPRAZOLAM
     Indication: ANXIETY DISORDER
     Dosage: 3X/DAY: 6 MG IN THE MORNING, 6 MG MIDDAY, 9 MG IN THE EVENING.
     Route: 048

REACTIONS (2)
  - Hemiparesis [Recovering/Resolving]
  - Cerebral haemorrhage [Recovering/Resolving]

NARRATIVE: CASE EVENT DATE: 20150625
